FAERS Safety Report 17266046 (Version 2)
Quarter: 2020Q1

REPORT INFORMATION
  Report Type: Spontaneous
  Country: US (occurrence: US)
  Receive Date: 20200114
  Receipt Date: 20200114
  Transmission Date: 20200409
  Serious: Yes (Other)
  Sender: FDA-Public Use
  Company Number: US-CELGENEUS-USA-20200102961

PATIENT
  Age: 77 Year
  Sex: Male

DRUGS (10)
  1. LOVASTATIN. [Concomitant]
     Active Substance: LOVASTATIN
     Indication: PRODUCT USED FOR UNKNOWN INDICATION
     Route: 065
  2. VITAMIN B12 [Concomitant]
     Active Substance: CYANOCOBALAMIN
     Indication: PRODUCT USED FOR UNKNOWN INDICATION
     Route: 065
  3. TRIAMTERENE. [Concomitant]
     Active Substance: TRIAMTERENE
     Indication: PRODUCT USED FOR UNKNOWN INDICATION
     Route: 065
  4. ALLOPURINOL. [Concomitant]
     Active Substance: ALLOPURINOL
     Indication: PRODUCT USED FOR UNKNOWN INDICATION
     Route: 065
  5. VITAMIN D3 [Concomitant]
     Active Substance: CHOLECALCIFEROL
     Indication: PRODUCT USED FOR UNKNOWN INDICATION
     Route: 065
  6. JAKAFI [Suspect]
     Active Substance: RUXOLITINIB
     Indication: PRIMARY MYELOFIBROSIS
     Dosage: 20 MILLIGRAM
     Route: 048
  7. VIDAZA [Suspect]
     Active Substance: AZACITIDINE
     Indication: MYELOFIBROSIS
     Route: 065
  8. TRAZODONE [Concomitant]
     Active Substance: TRAZODONE HYDROCHLORIDE
     Indication: PRODUCT USED FOR UNKNOWN INDICATION
     Route: 065
  9. JAKAFI [Suspect]
     Active Substance: RUXOLITINIB
     Indication: MYELOFIBROSIS
     Dosage: 20 MILLIGRAM
     Route: 048
     Dates: start: 20181220
  10. CALCIUM [Concomitant]
     Active Substance: CALCIUM
     Indication: PRODUCT USED FOR UNKNOWN INDICATION
     Route: 065

REACTIONS (15)
  - Decreased activity [Unknown]
  - Blood count abnormal [Unknown]
  - Nasopharyngitis [Unknown]
  - Peripheral coldness [Unknown]
  - Haemorrhagic diathesis [Unknown]
  - Appetite disorder [Unknown]
  - Wound haemorrhage [Unknown]
  - Platelet count decreased [Unknown]
  - Bronchial disorder [Unknown]
  - Night sweats [Unknown]
  - Fatigue [Unknown]
  - Somnolence [Unknown]
  - Haemoglobin decreased [Unknown]
  - Weight increased [Not Recovered/Not Resolved]
  - Red blood cell count decreased [Unknown]
